FAERS Safety Report 13503799 (Version 1)
Quarter: 2017Q2

REPORT INFORMATION
  Report Type: Spontaneous
  Country: US (occurrence: US)
  Receive Date: 20170502
  Receipt Date: 20170502
  Transmission Date: 20170830
  Serious: Yes (Death)
  Sender: FDA-Public Use
  Company Number: US-TEVA-764081USA

PATIENT
  Age: 3 Year
  Sex: Male
  Weight: 16.8 kg

DRUGS (1)
  1. HYDROMORPHONE [Suspect]
     Active Substance: HYDROMORPHONE
     Indication: ACCIDENTAL EXPOSURE TO PRODUCT
     Dosage: 2MG, 2 TABLETS TOTALLY
     Route: 048

REACTIONS (4)
  - Accidental exposure to product [Fatal]
  - Overdose [Fatal]
  - Toxicity to various agents [Fatal]
  - Aspiration [Fatal]
